FAERS Safety Report 16630121 (Version 2)
Quarter: 2019Q3

REPORT INFORMATION
  Report Type: Report from Study
  Country: IT (occurrence: IT)
  Receive Date: 20190725
  Receipt Date: 20190926
  Transmission Date: 20191004
  Serious: Yes (Other)
  Sender: FDA-Public Use
  Company Number: IT-MYLANLABS-2019M1069026

PATIENT
  Age: 77 Year
  Sex: Male

DRUGS (2)
  1. SOTALEX [Suspect]
     Active Substance: SOTALOL
     Indication: EXTRASYSTOLES
     Dosage: 120 MILLIGRAM, QD
     Route: 048
     Dates: start: 20160308
  2. TAMSULOSIN [Suspect]
     Active Substance: TAMSULOSIN
     Indication: BENIGN PROSTATIC HYPERPLASIA
     Dosage: 0.4 MILLIGRAM, QD
     Route: 048
     Dates: start: 20160325

REACTIONS (3)
  - Presyncope [Recovered/Resolved]
  - Fall [Recovered/Resolved]
  - Vision blurred [Recovered/Resolved]

NARRATIVE: CASE EVENT DATE: 20181211
